FAERS Safety Report 6738568-2 (Version None)
Quarter: 2010Q2

REPORT INFORMATION
  Report Type: 
  Country: None (occurrence: None)
  Receive Date: 20100524
  Receipt Date: 20100514
  Transmission Date: 20101027
  Serious: Yes (Other)
  Sender: FDA-Public Use
  Company Number: BR-PFIZER INC-2010060819

PATIENT
  Age: 68 Year
  Sex: Female
  Weight: 87 kg

DRUGS (12)
  1. FRONTAL [Suspect]
     Indication: DEPRESSION
     Dosage: 0.25 MG, 1X/DAY
     Route: 048
     Dates: start: 19950101
  2. FRONTAL [Suspect]
     Indication: BIPOLAR DISORDER
  3. LEXAPRO [Concomitant]
     Indication: DEPRESSION
     Dosage: 10 MG, UNK
  4. ASPIRIN [Concomitant]
     Dosage: UNK
  5. VASTAREL [Concomitant]
     Dosage: 37.5 MG, UNK
  6. VALSARTAN [Concomitant]
     Dosage: 50 MG, UNK
  7. SELOZOK [Concomitant]
     Dosage: UNK
  8. MONOCORDIL [Concomitant]
     Dosage: UNK
  9. PLAVIX [Concomitant]
     Dosage: 75 MG, UNK
  10. CARDIZEM [Concomitant]
     Dosage: 90 MG, UNK
  11. CRESTOR [Concomitant]
     Dosage: 10 MG, UNK
  12. SUSTRATE [Concomitant]
     Dosage: UNK
     Dates: start: 20050101

REACTIONS (5)
  - ABDOMINAL PAIN [None]
  - HEADACHE [None]
  - NOSOCOMIAL INFECTION [None]
  - OSTEOARTHRITIS [None]
  - POOR QUALITY DRUG ADMINISTERED [None]
